FAERS Safety Report 7033205-4 (Version None)
Quarter: 2010Q4

REPORT INFORMATION
  Report Type: 
  Country: None (occurrence: None)
  Receive Date: 20101007
  Receipt Date: 20100923
  Transmission Date: 20110411
  Serious: Yes (Hospitalization)
  Sender: FDA-Public Use
  Company Number: US-ROCHE-729550

PATIENT
  Sex: Male
  Weight: 182 kg

DRUGS (9)
  1. PEGINTERFERON ALFA-2A [Suspect]
     Dosage: DOSE FORM: REDIPEN, UNITS: MCG
     Route: 058
     Dates: start: 20090407, end: 20090713
  2. PEGINTERFERON ALFA-2A [Suspect]
     Dosage: DATE OF LAST DOSE: 07 JULY 2009
     Route: 058
     Dates: start: 20090728
  3. RIBAVIRIN [Suspect]
     Route: 048
     Dates: start: 20090407, end: 20090713
  4. RIBAVIRIN [Suspect]
     Dosage: DATE OF LAST DOSE: 13 JULY 2009
     Route: 048
     Dates: start: 20090727
  5. ADVAIR DISKUS 100/50 [Concomitant]
     Dosage: TOTAL DAILY DOSE: 250/50 MCG
     Dates: start: 20080101
  6. SPIRIVA [Concomitant]
     Dosage: TDD: ONE INHALATION
     Dates: start: 20080101
  7. PAXIL [Concomitant]
     Dates: start: 20080101
  8. PAXIL [Concomitant]
  9. TRAZODONE HCL [Concomitant]
     Dates: start: 20080101, end: 20091001

REACTIONS (1)
  - PANIC ATTACK [None]
